FAERS Safety Report 4320804-3 (Version None)
Quarter: 2004Q1

REPORT INFORMATION
  Report Type: 
  Country: None (occurrence: None)
  Receive Date: 20040315
  Receipt Date: 20030624
  Transmission Date: 20041129
  Serious: Yes (Other)
  Sender: FDA-Public Use
  Company Number: PHEH2003US04914

PATIENT
  Age: 10 Year
  Sex: Female
  Weight: 61.7 kg

DRUGS (1)
  1. TRILEPTAL [Suspect]
     Dosage: BID, ORAL
     Route: 048
     Dates: start: 20021112, end: 20030601

REACTIONS (2)
  - POLYARTHRITIS [None]
  - SYSTEMIC LUPUS ERYTHEMATOSUS [None]
